FAERS Safety Report 16748819 (Version 2)
Quarter: 2019Q3

REPORT INFORMATION
  Report Type: Spontaneous
  Country: US (occurrence: US)
  Receive Date: 20190828
  Receipt Date: 20190830
  Transmission Date: 20191005
  Serious: Yes (Other)
  Sender: FDA-Public Use
  Company Number: US-LUPIN PHARMACEUTICALS INC.-2019-05079

PATIENT
  Age: 58 Year
  Sex: Female
  Weight: 81.63 kg

DRUGS (1)
  1. LEVOTHYROXINE SODIUM TABLETS, 88 MCG [Suspect]
     Active Substance: LEVOTHYROXINE SODIUM
     Indication: HYPOTHYROIDISM
     Dosage: 88 MICROGRAM, QD
     Route: 048
     Dates: start: 20190802, end: 20190804

REACTIONS (12)
  - Critical illness [Unknown]
  - Abdominal pain [Not Recovered/Not Resolved]
  - Disturbance in attention [Not Recovered/Not Resolved]
  - Product substitution issue [Unknown]
  - Palpitations [Recovered/Resolved]
  - Constipation [Not Recovered/Not Resolved]
  - Memory impairment [Not Recovered/Not Resolved]
  - Feeling abnormal [Not Recovered/Not Resolved]
  - Loss of consciousness [Unknown]
  - Diarrhoea [Not Recovered/Not Resolved]
  - Tremor [Recovered/Resolved]
  - Amnesia [Not Recovered/Not Resolved]

NARRATIVE: CASE EVENT DATE: 20190802
